FAERS Safety Report 7301958-3 (Version None)
Quarter: 2011Q1

REPORT INFORMATION
  Report Type: 
  Country: None (occurrence: None)
  Receive Date: 20110218
  Receipt Date: 20110214
  Transmission Date: 20110831
  Serious: Yes (Death)
  Sender: FDA-Public Use
  Company Number: US-ROCHE-759902

PATIENT
  Age: 68 Year
  Sex: Female

DRUGS (1)
  1. VALCYTE [Suspect]
     Dosage: ONE TABLET DAILY
     Route: 048

REACTIONS (1)
  - POST PROCEDURAL COMPLICATION [None]
